FAERS Safety Report 10565231 (Version 1)
Quarter: 2014Q4

REPORT INFORMATION
  Report Type: Spontaneous
  Country: US (occurrence: None)
  Receive Date: 20141104
  Receipt Date: 20141104
  Transmission Date: 20150529
  Serious: No
  Sender: FDA-Public Use
  Company Number: None

PATIENT
  Age: 47 Year
  Sex: Female

DRUGS (1)
  1. EUCERIN DAILY PROTECTION BODY [Suspect]
     Active Substance: AVOBENZONE\HOMOSALATE\OCTISALATE

REACTIONS (4)
  - Application site exfoliation [None]
  - Application site fissure [None]
  - Application site rash [None]
  - Application site pain [None]

NARRATIVE: CASE EVENT DATE: 20140901
